FAERS Safety Report 18988362 (Version 2)
Quarter: 2021Q1

REPORT INFORMATION
  Report Type: Report from Study
  Country: US (occurrence: US)
  Receive Date: 20210309
  Receipt Date: 20210324
  Transmission Date: 20210420
  Serious: Yes (Other)
  Sender: FDA-Public Use
  Company Number: US-GLAXOSMITHKLINE-US2021AMR028627

PATIENT
  Sex: Female

DRUGS (1)
  1. BELANTAMAB MAFODOTIN. [Suspect]
     Active Substance: BELANTAMAB MAFODOTIN
     Indication: PRODUCT USED FOR UNKNOWN INDICATION
     Dosage: UNK
     Dates: start: 20201208, end: 20210209

REACTIONS (7)
  - Keratopathy [Unknown]
  - Spinal fracture [Unknown]
  - Visual acuity reduced [Unknown]
  - Pruritus [Unknown]
  - Tremor [Unknown]
  - Condition aggravated [Unknown]
  - Feeling abnormal [Unknown]
